FAERS Safety Report 10551409 (Version 1)
Quarter: 2014Q4

REPORT INFORMATION
  Report Type: Spontaneous
  Country: US (occurrence: None)
  Receive Date: 20141021
  Receipt Date: 20141021
  Transmission Date: 20150529
  Serious: Yes (Other)
  Sender: FDA-Public Use
  Company Number: PHEH2014US014493

PATIENT
  Age: 08 Year
  Sex: Female
  Weight: 37 kg

DRUGS (2)
  1. TOBI PODHALER [Suspect]
     Active Substance: TOBRAMYCIN
     Indication: PSEUDOMONAS INFECTION
     Dosage: 4 CAPSULES
     Route: 055
  2. TOBI PODHALER [Suspect]
     Active Substance: TOBRAMYCIN
     Indication: CYSTIC FIBROSIS
     Dosage: 4 CAPSULES
     Route: 055

REACTIONS (5)
  - Chest discomfort [None]
  - Bronchospasm [None]
  - Wheezing [None]
  - Forced expiratory volume decreased [None]
  - Forced expiratory flow decreased [None]

NARRATIVE: CASE EVENT DATE: 20140709
